FAERS Safety Report 9500241 (Version 1)
Quarter: 2013Q3

REPORT INFORMATION
  Report Type: Spontaneous
  Country: US (occurrence: US)
  Receive Date: 20130905
  Receipt Date: 20130905
  Transmission Date: 20140515
  Serious: No
  Sender: FDA-Public Use
  Company Number: US-PFIZER INC-2013255992

PATIENT
  Age: 56 Year
  Sex: Male
  Weight: 125 kg

DRUGS (3)
  1. LYRICA [Suspect]
     Indication: PAIN MANAGEMENT
     Dosage: UNK
     Dates: start: 2010, end: 2010
  2. ACTOS [Concomitant]
     Indication: DIABETES MELLITUS
     Dosage: UNK, DAILY
  3. HYZAAR [Concomitant]
     Indication: HYPERTENSION
     Dosage: UNK, DAILY

REACTIONS (3)
  - Skin discolouration [Not Recovered/Not Resolved]
  - Petechiae [Not Recovered/Not Resolved]
  - Local swelling [Recovered/Resolved]
